FAERS Safety Report 4288342-4 (Version None)
Quarter: 2004Q1

REPORT INFORMATION
  Report Type: 
  Country: None (occurrence: None)
  Receive Date: 20040205
  Receipt Date: 20040126
  Transmission Date: 20041129
  Serious: Yes (Other)
  Sender: FDA-Public Use
  Company Number: HQWYE554326JAN04

PATIENT
  Age: 27 Year
  Sex: Female

DRUGS (1)
  1. TRIQUILAR (LEVONORGESTREL/ETHINYL ESTRAIOL) [Suspect]
     Indication: ORAL CONTRACEPTION
     Dosage: 1 TABLET DAILY
     Route: 048
     Dates: start: 20031219, end: 20040108

REACTIONS (2)
  - ABORTION SPONTANEOUS [None]
  - DRUG EXPOSURE DURING PREGNANCY [None]
